FAERS Safety Report 23903909 (Version 2)
Quarter: 2024Q2

REPORT INFORMATION
  Report Type: Spontaneous
  Country: CH (occurrence: CH)
  Receive Date: 20240527
  Receipt Date: 20240618
  Transmission Date: 20240716
  Serious: Yes (Hospitalization)
  Sender: FDA-Public Use
  Company Number: CH-Accord-426226

PATIENT
  Age: 34 Year
  Sex: Male

DRUGS (6)
  1. CLOZAPINE [Interacting]
     Active Substance: CLOZAPINE
     Indication: Schizophrenia
     Dates: start: 202008, end: 202008
  2. FLUVOXAMINE [Interacting]
     Active Substance: FLUVOXAMINE
     Indication: Schizophrenia
     Dates: start: 2020
  3. CLOZAPINE [Interacting]
     Active Substance: CLOZAPINE
     Indication: Schizophrenia
     Dates: start: 202008
  4. CLOZAPINE [Interacting]
     Active Substance: CLOZAPINE
     Indication: Schizophrenia
     Dates: start: 2016
  5. CLOZAPINE [Interacting]
     Active Substance: CLOZAPINE
     Indication: Schizophrenia
     Dates: start: 2020
  6. FLUVOXAMINE [Interacting]
     Active Substance: FLUVOXAMINE
     Indication: Schizophrenia
     Dates: start: 2020, end: 2020

REACTIONS (5)
  - Liver disorder [Recovered/Resolved]
  - Dyslipidaemia [Recovered/Resolved]
  - Hyperglycaemia [Recovered/Resolved]
  - Drug interaction [Recovered/Resolved]
  - Drug level decreased [Recovered/Resolved]

NARRATIVE: CASE EVENT DATE: 20200801
